FAERS Safety Report 11213780 (Version 1)
Quarter: 2015Q2

REPORT INFORMATION
  Report Type: Spontaneous
  Country: US (occurrence: US)
  Receive Date: 20150623
  Receipt Date: 20150623
  Transmission Date: 20150821
  Serious: Yes (Other)
  Sender: FDA-Public Use
  Company Number: US-MYLANLABS-2015M1013466

PATIENT
  Age: 56 Year
  Sex: Female

DRUGS (1)
  1. METHOTREXATE (METHOTREXATE SODIUM) [Suspect]
     Active Substance: METHOTREXATE SODIUM
     Indication: RHEUMATOID ARTHRITIS
     Dosage: 2.5 MG, 3XW
     Route: 048
     Dates: start: 200710, end: 201406

REACTIONS (1)
  - Pulmonary fibrosis [Not Recovered/Not Resolved]

NARRATIVE: CASE EVENT DATE: 201406
